FAERS Safety Report 9675440 (Version 1)
Quarter: 2013Q4

REPORT INFORMATION
  Report Type: Spontaneous
  Country: SA (occurrence: None)
  Receive Date: 20131105
  Receipt Date: 20131105
  Transmission Date: 20140711
  Serious: Yes (Other)
  Sender: FDA-Public Use
  Company Number: CC400197734

PATIENT
  Age: 80 Year
  Sex: Male
  Weight: 74 kg

DRUGS (2)
  1. GLYCINE [Suspect]
     Indication: BLADDER IRRIGATION
     Dosage: IRRIGATION
  2. CEFTRIAXONE 1G IV [Concomitant]

REACTIONS (10)
  - Bladder perforation [None]
  - Abdominal distension [None]
  - Sinus bradycardia [None]
  - Pulmonary congestion [None]
  - Haemodialysis [None]
  - Blood urea increased [None]
  - Blood creatinine increased [None]
  - Blood sodium decreased [None]
  - Blood creatine phosphokinase increased [None]
  - Oliguria [None]
